APPROVED DRUG PRODUCT: ETODOLAC
Active Ingredient: ETODOLAC
Strength: 200MG
Dosage Form/Route: CAPSULE;ORAL
Application: A074842 | Product #001
Applicant: CHARTWELL MOLECULES LLC
Approved: Jul 17, 1997 | RLD: No | RS: No | Type: DISCN